FAERS Safety Report 8862057 (Version 3)
Quarter: 2014Q2

REPORT INFORMATION
  Report Type: Spontaneous
  Country: US (occurrence: US)
  Receive Date: 20121026
  Receipt Date: 20140411
  Transmission Date: 20141212
  Serious: Yes (Death, Congenital Anomaly, Other)
  Sender: FDA-Public Use
  Company Number: US-PFIZER INC-2012263773

PATIENT
  Sex: Male
  Weight: 1.44 kg

DRUGS (10)
  1. ZOLOFT [Suspect]
     Dosage: UNK
     Route: 064
     Dates: start: 20060423
  2. SERTRALINE HCL [Suspect]
     Dosage: UNK
     Route: 064
     Dates: start: 20060423
  3. VICODIN [Concomitant]
     Dosage: UNK
     Route: 064
  4. REGLAN [Concomitant]
     Dosage: UNK
     Route: 064
  5. ALBUTEROL [Concomitant]
     Dosage: UNK
     Route: 064
  6. PRENATAL VITAMINS [Concomitant]
     Dosage: UNK
     Route: 064
  7. PHENERGAN [Concomitant]
     Dosage: UNK
     Route: 064
  8. IRON [Concomitant]
     Dosage: UNK
     Route: 064
  9. RHOGAM [Concomitant]
     Dosage: UNK
     Route: 064
  10. DOXYCYCLINE [Concomitant]
     Dosage: UNK
     Route: 064

REACTIONS (3)
  - Maternal exposure timing unspecified [Fatal]
  - Anencephaly [Fatal]
  - Premature baby [Unknown]
